FAERS Safety Report 9099824 (Version 2)
Quarter: 2013Q1

REPORT INFORMATION
  Report Type: Report from Study
  Country: US (occurrence: US)
  Receive Date: 20130214
  Receipt Date: 20130306
  Transmission Date: 20140127
  Serious: Yes (Hospitalization, Other)
  Sender: FDA-Public Use
  Company Number: US-ROCHE-1191078

PATIENT
  Sex: 0

DRUGS (2)
  1. BEVACIZUMAB [Suspect]
     Indication: ANGIOSARCOMA
     Dosage: RECEIVED 3 CYCLES DOSE OF 3004 MG.
     Route: 042
     Dates: start: 20070208, end: 20070430
  2. BEVACIZUMAB [Suspect]
     Indication: INTRAVASCULAR PAPILLARY ENDOTHELIAL HYPERPLASIA

REACTIONS (6)
  - Anaemia [Unknown]
  - Transaminases increased [Unknown]
  - Pneumonia [Recovered/Resolved]
  - Post procedural infection [Recovered/Resolved]
  - Cystitis [Recovered/Resolved]
  - Aphasia [Recovered/Resolved]
